FAERS Safety Report 6506517-8 (Version None)
Quarter: 2009Q4

REPORT INFORMATION
  Report Type: 
  Country: None (occurrence: None)
  Receive Date: 20091221
  Receipt Date: 20091118
  Transmission Date: 20100525
  Serious: No
  Sender: FDA-Public Use
  Company Number: US-BAYER-200940042NA

PATIENT
  Age: 52 Year
  Sex: Female

DRUGS (4)
  1. AVELOX [Suspect]
     Indication: INFLUENZA
  2. AVELOX [Suspect]
     Dates: start: 20080101
  3. CIPRO [Suspect]
     Indication: DRUG USE FOR UNKNOWN INDICATION
  4. MOBIC [Concomitant]

REACTIONS (2)
  - ARTHRALGIA [None]
  - TENDONITIS [None]
